FAERS Safety Report 6867546-8 (Version None)
Quarter: 2010Q3

REPORT INFORMATION
  Report Type: 
  Country: None (occurrence: None)
  Receive Date: 20100722
  Receipt Date: 20100713
  Transmission Date: 20110219
  Serious: Yes (Other)
  Sender: FDA-Public Use
  Company Number: US-BAYER-201033162GPV

PATIENT
  Age: 52 Year
  Sex: Female

DRUGS (20)
  1. NIFEDIPINE [Suspect]
     Indication: HYPERTENSION
     Route: 048
  2. CLONIDINE [Suspect]
     Indication: HYPERTENSION
     Route: 048
  3. CLONIDINE [Suspect]
  4. CLONIDINE [Suspect]
     Dosage: TOTAL DAILY DOSE: 0.6 MG
  5. HYDRALAZINE HCL [Suspect]
     Indication: HYPERTENSION
     Route: 042
  6. HYDRALAZINE HCL [Suspect]
     Route: 042
  7. HYDRALAZINE HCL [Suspect]
     Route: 042
  8. HYDRALAZINE HCL [Suspect]
     Route: 048
  9. HYDRALAZINE HCL [Suspect]
     Dosage: TOTAL DAILY DOSE: 30 MG
     Route: 048
  10. HYDRALAZINE HCL [Suspect]
  11. METOPROLOL SUCCINATE [Suspect]
     Indication: HYPERTENSION
     Route: 048
  12. METOPROLOL SUCCINATE [Suspect]
     Dosage: TOTAL DAILY DOSE: 400 MG
  13. METOPROLOL SUCCINATE [Suspect]
  14. METOPROLOL SUCCINATE [Suspect]
  15. DILTIAZEM CD [Suspect]
     Indication: HYPERTENSION
     Dosage: TOTAL DAILY DOSE: 360 MG
     Route: 048
  16. DILTIAZEM CD [Suspect]
  17. LOPINAVIR/RITONAVIR [Suspect]
     Indication: HIV INFECTION
     Dosage: 2 TABLETS 200/50 MG
  18. LOPINAVIR/RITONAVIR [Suspect]
     Dosage: 2 TABLETS 200/50 MG
  19. LOPINAVIR/RITONAVIR [Suspect]
     Dosage: 2 TABLETS 200/50 MG
  20. LABETALOL HCL [Suspect]
     Indication: HYPERTENSION
     Route: 042

REACTIONS (4)
  - ATRIOVENTRICULAR DISSOCIATION [None]
  - BLOOD PRESSURE DECREASED [None]
  - CONFUSIONAL STATE [None]
  - DEPRESSED LEVEL OF CONSCIOUSNESS [None]
